FAERS Safety Report 7144845-6 (Version None)
Quarter: 2010Q4

REPORT INFORMATION
  Report Type: 
  Country: None (occurrence: None)
  Receive Date: 20101123
  Receipt Date: 20101109
  Transmission Date: 20110411
  Serious: Yes (Other)
  Sender: FDA-Public Use
  Company Number: 011840

PATIENT
  Age: 3 Year
  Sex: Female

DRUGS (3)
  1. BUSULFEX [Suspect]
     Indication: STEM CELL TRANSPLANT
     Dosage: INTRAVENOUS
     Route: 042
  2. CYCLOPHOSPHAMIDE [Concomitant]
  3. METHOTREXATE [Concomitant]

REACTIONS (5)
  - ACUTE GRAFT VERSUS HOST DISEASE IN INTESTINE [None]
  - CLOSTRIDIAL INFECTION [None]
  - INTRACRANIAL PRESSURE INCREASED [None]
  - NEUROTOXICITY [None]
  - STAPHYLOCOCCAL BACTERAEMIA [None]
